FAERS Safety Report 17213012 (Version 1)
Quarter: 2019Q4

REPORT INFORMATION
  Report Type: Spontaneous
  Country: US (occurrence: US)
  Receive Date: 20191230
  Receipt Date: 20191230
  Transmission Date: 20200122
  Serious: No
  Sender: FDA-Public Use
  Company Number: US-TEVA-2019-US-1161876

PATIENT
  Age: 52 Year
  Sex: Female

DRUGS (1)
  1. AJOVY [Suspect]
     Active Substance: FREMANEZUMAB-VFRM
     Indication: MIGRAINE
     Dosage: 225/1.5MG/5ML, SYRINGE
     Route: 065
     Dates: start: 20190328

REACTIONS (2)
  - Therapeutic product effect incomplete [Unknown]
  - Contusion [Unknown]

NARRATIVE: CASE EVENT DATE: 201903
